FAERS Safety Report 10420498 (Version 1)
Quarter: 2014Q2

REPORT INFORMATION
  Report Type: Spontaneous
  Country: US (occurrence: None)
  Receive Date: 20140626
  Receipt Date: 20140626
  Transmission Date: 20141212
  Serious: Yes (Death)
  Sender: FDA-Public Use
  Company Number: 2014020123

PATIENT
  Age: 54 Year
  Sex: Female

DRUGS (3)
  1. MEPROBAMATE (MEPROBAMATE) [Suspect]
  2. MORPHINE [Suspect]
  3. DIAZEPAM (DIAZEPAM) [Suspect]

REACTIONS (1)
  - Drug abuse [None]
